FAERS Safety Report 22294134 (Version 3)
Quarter: 2023Q2

REPORT INFORMATION
  Report Type: Spontaneous
  Country: US (occurrence: US)
  Receive Date: 20230508
  Receipt Date: 20230620
  Transmission Date: 20230721
  Serious: No
  Sender: FDA-Public Use
  Company Number: US-PFIZER INC-PV202300031342

PATIENT
  Age: 65 Year
  Sex: Female
  Weight: 69.841 kg

DRUGS (1)
  1. ESTRING [Suspect]
     Active Substance: ESTRADIOL
     Indication: Menopause
     Dosage: AS DIRECTED EVERY 90 DAYS

REACTIONS (1)
  - Product dose omission issue [Unknown]
